APPROVED DRUG PRODUCT: NIFEDIPINE
Active Ingredient: NIFEDIPINE
Strength: 30MG
Dosage Form/Route: TABLET, EXTENDED RELEASE;ORAL
Application: A075289 | Product #002 | TE Code: AB2
Applicant: VALEANT PHARMACEUTICALS NORTH AMERICA LLC
Approved: Feb 6, 2001 | RLD: No | RS: No | Type: RX